FAERS Safety Report 9499138 (Version 1)
Quarter: 2013Q3

REPORT INFORMATION
  Report Type: Spontaneous
  Country: US (occurrence: US)
  Receive Date: 20130904
  Receipt Date: 20130904
  Transmission Date: 20140515
  Serious: Yes (Hospitalization, Other)
  Sender: FDA-Public Use
  Company Number: US-ROXANE LABORATORIES, INC.-2013-RO-01456RO

PATIENT
  Age: 66 Year
  Sex: Female

DRUGS (5)
  1. PREDNISONE [Suspect]
     Indication: SYSTEMIC LUPUS ERYTHEMATOSUS
     Dosage: 20 MG
  2. WARFARIN [Suspect]
     Indication: ANTIPHOSPHOLIPID SYNDROME
  3. TRIMETHOPRIM/SULFAMETHOXAZOLE [Suspect]
     Indication: NOCARDIOSIS
  4. MEROPENEM [Suspect]
     Indication: NOCARDIOSIS
  5. LINEZOLID [Suspect]
     Indication: NOCARDIOSIS

REACTIONS (2)
  - Nocardiosis [Unknown]
  - Thrombocytopenia [Unknown]
